FAERS Safety Report 6731854-1 (Version None)
Quarter: 2010Q2

REPORT INFORMATION
  Report Type: 
  Country: None (occurrence: None)
  Receive Date: 20100519
  Receipt Date: 20100519
  Transmission Date: 20101027
  Serious: No
  Sender: FDA-Public Use
  Company Number: None

PATIENT
  Age: 18 Month
  Sex: Female
  Weight: 9.5709 kg

DRUGS (2)
  1. TYLENOL INFANT'S CONCENTRATED DROPS [Suspect]
     Indication: PYREXIA
     Dosage: .8 ML - .12 ML ONCE WHEN NEEDED PO
     Route: 048
     Dates: start: 20091101, end: 20100517
  2. TYLENOL INFANT'S CONCENTRATED DROPS [Suspect]
     Indication: TEETHING
     Dosage: .8 ML - .12 ML ONCE WHEN NEEDED PO
     Route: 048
     Dates: start: 20091101, end: 20100517

REACTIONS (2)
  - PRODUCT QUALITY ISSUE [None]
  - SCREAMING [None]
